FAERS Safety Report 4821822-9 (Version None)
Quarter: 2005Q4

REPORT INFORMATION
  Report Type: 
  Country: None (occurrence: None)
  Receive Date: 20051103
  Receipt Date: 20051020
  Transmission Date: 20060501
  Serious: Yes (Life-Threatening, Hospitalization)
  Sender: FDA-Public Use
  Company Number: GXKR2005DK01847

PATIENT

DRUGS (3)
  1. DICLON (NGX) (DICLOFENAC) SUPPOSITORY, 100MG [Suspect]
     Indication: PAIN
     Dosage: 100 MG, ONCE/SINGLE
  2. TRAMADOL (NGX) (TRAMADOL) UNKNOWN [Suspect]
     Indication: PAIN
     Dosage: 50 MG, ONCE/SINGLE
  3. PINEX (PARACETAMOL) [Suspect]
     Indication: PAIN
     Dosage: 2 PCS

REACTIONS (6)
  - ACUTE MYOCARDIAL INFARCTION [None]
  - DRUG PRESCRIBING ERROR [None]
  - LOSS OF CONSCIOUSNESS [None]
  - MUSCLE SPASMS [None]
  - PULSE ABSENT [None]
  - VOMITING [None]
